FAERS Safety Report 7125839-3 (Version None)
Quarter: 2010Q4

REPORT INFORMATION
  Report Type: 
  Country: None (occurrence: None)
  Receive Date: 20101129
  Receipt Date: 20100316
  Transmission Date: 20110411
  Serious: No
  Sender: FDA-Public Use
  Company Number: US-MYLANLABS-2010S1002329

PATIENT
  Age: 47 Year
  Sex: Female

DRUGS (2)
  1. CLONAZEPAM [Suspect]
     Indication: ANXIETY
     Dosage: PRN FOR ANXIETY
     Route: 048
     Dates: start: 20100128
  2. CLONAZEPAM [Suspect]
     Indication: INSOMNIA
     Dosage: PRN FOR ANXIETY
     Route: 048
     Dates: start: 20100128

REACTIONS (4)
  - ANXIETY [None]
  - DIZZINESS [None]
  - DRUG INEFFECTIVE [None]
  - INSOMNIA [None]
